FAERS Safety Report 4688664-9 (Version None)
Quarter: 2005Q2

REPORT INFORMATION
  Report Type: 
  Country: None (occurrence: None)
  Receive Date: 20050610
  Receipt Date: 20050610
  Transmission Date: 20051028
  Serious: No
  Sender: FDA-Public Use
  Company Number: None

PATIENT
  Age: 52 Year
  Sex: Male
  Weight: 143 kg

DRUGS (9)
  1. OLANZAPINE [Suspect]
     Indication: BIPOLAR DISORDER
     Dosage: 20 MG DAILY ORAL
     Route: 048
     Dates: start: 20041119, end: 20050401
  2. OLANZAPINE [Suspect]
     Indication: MANIA
     Dosage: 20 MG DAILY ORAL
     Route: 048
     Dates: start: 20041119, end: 20050401
  3. BENAZEPRIL HCL [Concomitant]
  4. HYDRALAZINE [Concomitant]
  5. IBUPROFEN [Concomitant]
  6. INSULIN [Concomitant]
  7. METOPROLOL [Concomitant]
  8. OMEPRAZOLE [Concomitant]
  9. SERTRALINE HCL [Concomitant]

REACTIONS (3)
  - DIABETES MELLITUS NON-INSULIN-DEPENDENT [None]
  - FALL [None]
  - LOSS OF CONSCIOUSNESS [None]
